FAERS Safety Report 12875781 (Version 1)
Quarter: 2016Q4

REPORT INFORMATION
  Report Type: Spontaneous
  Country: GB (occurrence: GB)
  Receive Date: 20161024
  Receipt Date: 20161024
  Transmission Date: 20170207
  Serious: Yes (Hospitalization, Other)
  Sender: FDA-Public Use
  Company Number: GB-AUROBINDO-AUR-APL-2016-10896

PATIENT
  Age: 6 Year
  Sex: Male
  Weight: 24 kg

DRUGS (11)
  1. ALFACALCIDOL [Concomitant]
     Active Substance: ALFACALCIDOL
     Indication: HYPERTENSION
     Route: 065
  2. FUROSEMIDE. [Concomitant]
     Active Substance: FUROSEMIDE
     Indication: MALIGNANT NEOPLASM OF UNKNOWN PRIMARY SITE
     Route: 065
  3. SANDOCAL                           /01767901/ [Concomitant]
     Indication: MALIGNANT NEOPLASM OF UNKNOWN PRIMARY SITE
     Route: 065
  4. AMLODIPINE [Concomitant]
     Active Substance: AMLODIPINE BESYLATE
     Indication: HYPERTENSION
     Route: 065
  5. AMLODIPINE [Concomitant]
     Active Substance: AMLODIPINE BESYLATE
     Indication: MALIGNANT NEOPLASM OF UNKNOWN PRIMARY SITE
  6. LISINOPRIL TABLET [Suspect]
     Active Substance: LISINOPRIL
     Indication: PROTEINURIA
     Dosage: UNK
     Route: 065
  7. LISINOPRIL TABLET [Suspect]
     Active Substance: LISINOPRIL
     Indication: HYPERTENSION
     Dosage: 5 MG, QD, ORAL LIQUID
     Route: 048
     Dates: start: 201406, end: 201606
  8. SANDOCAL                           /01767901/ [Concomitant]
     Indication: HYPERTENSION
  9. ATENOLOL. [Concomitant]
     Active Substance: ATENOLOL
     Indication: PRODUCT USED FOR UNKNOWN INDICATION
     Route: 065
  10. ALFACALCIDOL [Concomitant]
     Active Substance: ALFACALCIDOL
     Indication: MALIGNANT NEOPLASM OF UNKNOWN PRIMARY SITE
  11. FUROSEMIDE. [Concomitant]
     Active Substance: FUROSEMIDE
     Indication: HYPERTENSION

REACTIONS (2)
  - Haemolytic uraemic syndrome [Not Recovered/Not Resolved]
  - Renal impairment [Not Recovered/Not Resolved]

NARRATIVE: CASE EVENT DATE: 201604
